FAERS Safety Report 6522066-5 (Version None)
Quarter: 2009Q4

REPORT INFORMATION
  Report Type: 
  Country: None (occurrence: None)
  Receive Date: 20091230
  Receipt Date: 20091215
  Transmission Date: 20100525
  Serious: Yes (Other)
  Sender: FDA-Public Use
  Company Number: PHEH2009US15393

PATIENT
  Sex: Male

DRUGS (5)
  1. GENTEAL GEL (NVO) [Suspect]
     Indication: DRY EYE
     Dosage: UNK
     Dates: start: 20090301
  2. MAXZIDE [Concomitant]
  3. ASPIRIN [Concomitant]
  4. SYNTHROID [Concomitant]
  5. SELENIUM [Concomitant]

REACTIONS (4)
  - DRUG EFFECT DELAYED [None]
  - INCORRECT DOSE ADMINISTERED [None]
  - VISION BLURRED [None]
  - VITREOUS HAEMORRHAGE [None]
